FAERS Safety Report 19203931 (Version 1)
Quarter: 2021Q2

REPORT INFORMATION
  Report Type: Spontaneous
  Country: GB (occurrence: GB)
  Receive Date: 20210503
  Receipt Date: 20210503
  Transmission Date: 20210717
  Serious: Yes (Other)
  Sender: FDA-Public Use
  Company Number: GB-CIPLA LTD.-2021GB03131

PATIENT

DRUGS (1)
  1. FINASTERIDE. [Suspect]
     Active Substance: FINASTERIDE
     Indication: ILL-DEFINED DISORDER
     Dosage: 1 MILLIGRAM, DAILY
     Route: 048
     Dates: start: 20200901, end: 20210302

REACTIONS (3)
  - Adverse drug reaction [Not Recovered/Not Resolved]
  - Erectile dysfunction [Not Recovered/Not Resolved]
  - Mental impairment [Recovering/Resolving]

NARRATIVE: CASE EVENT DATE: 20210303
